FAERS Safety Report 13500169 (Version 1)
Quarter: 2017Q2

REPORT INFORMATION
  Report Type: Spontaneous
  Country: US (occurrence: US)
  Receive Date: 20170501
  Receipt Date: 20170501
  Transmission Date: 20170830
  Serious: No
  Sender: FDA-Public Use
  Company Number: US-SHIRE-US201709656

PATIENT
  Age: 57 Year
  Sex: Female

DRUGS (2)
  1. XIIDRA [Suspect]
     Active Substance: LIFITEGRAST
     Dosage: 1 GTT (OU), 2X/DAY:BID
     Route: 047
     Dates: start: 201704
  2. XIIDRA [Suspect]
     Active Substance: LIFITEGRAST
     Indication: DRY EYE
     Dosage: 1 GTT (OU), 2X/DAY:BID
     Route: 047
     Dates: start: 201701, end: 201703

REACTIONS (3)
  - Instillation site irritation [Unknown]
  - Drug dose omission [Unknown]
  - Instillation site erythema [Unknown]

NARRATIVE: CASE EVENT DATE: 2017
